FAERS Safety Report 24351524 (Version 1)
Quarter: 2024Q3

REPORT INFORMATION
  Report Type: Report from Study
  Country: AT (occurrence: AT)
  Receive Date: 20240923
  Receipt Date: 20240923
  Transmission Date: 20241016
  Serious: No
  Sender: ROCHE
  Company Number: AT-ROCHE-2732383

PATIENT
  Age: 62 Year
  Sex: Female
  Weight: 55.0 kg

DRUGS (33)
  1. HERCEPTIN [Suspect]
     Active Substance: TRASTUZUMAB
     Indication: HER2 positive breast cancer
     Dosage: MOST RECENT DOSE PRIOR TO THE EVENT: 30/AUG/2018
     Route: 041
     Dates: start: 20180719, end: 20180719
  2. HERCEPTIN [Suspect]
     Active Substance: TRASTUZUMAB
     Dosage: MOST RECENT DOSE PRIOR TO THE EVENT: 30/AUG/2018
     Route: 041
     Dates: start: 20180809, end: 20180809
  3. HERCEPTIN [Suspect]
     Active Substance: TRASTUZUMAB
     Dosage: MOST RECENT DOSE PRIOR TO THE EVENT: 30/AUG/2018
     Route: 041
     Dates: start: 20180830, end: 20181105
  4. KADCYLA [Suspect]
     Active Substance: ADO-TRASTUZUMAB EMTANSINE
     Indication: HER2 positive breast cancer
     Dosage: MOST RECENT DOSE PRIOR TO AE 29/AUG/2019
     Route: 042
     Dates: start: 20190829, end: 20190829
  5. KADCYLA [Suspect]
     Active Substance: ADO-TRASTUZUMAB EMTANSINE
     Route: 042
     Dates: start: 20191003, end: 20200213
  6. TYKERB [Suspect]
     Active Substance: LAPATINIB DITOSYLATE
     Indication: HER2 positive breast cancer
     Dosage: MOST RECENT DOSE PRIOR TO THE EVENT: 26/MAR/2020
     Route: 048
     Dates: start: 20200326, end: 20200723
  7. TYKERB [Suspect]
     Active Substance: LAPATINIB DITOSYLATE
     Dosage: MOST RECENT DOSE PRIOR TO THE EVENT: 29/AUG/2020
     Route: 048
     Dates: start: 20200829, end: 20201022
  8. FEMARA [Suspect]
     Active Substance: LETROZOLE
     Indication: HER2 positive breast cancer
     Dosage: MOST RECENT DOSE PRIOR TO THE EVENT: 08/MAY/2019
     Route: 048
     Dates: start: 20190508, end: 20190819
  9. FEMARA [Suspect]
     Active Substance: LETROZOLE
     Dosage: MOST RECENT DOSE PRIOR TO THE EVENT: 12/MAY/2020
     Route: 048
     Dates: start: 20200512, end: 20201022
  10. PERJETA [Suspect]
     Active Substance: PERTUZUMAB
     Indication: HER2 positive breast cancer
     Dosage: MOST RECENT DOSE PRIOR TO THE EVENT: 09/AUG/2018
     Route: 042
     Dates: start: 20180719, end: 20180719
  11. PERJETA [Suspect]
     Active Substance: PERTUZUMAB
     Dosage: MOST RECENT DOSE PRIOR TO THE EVENT: 09/AUG/2018
     Route: 042
     Dates: start: 20180809, end: 20190704
  12. NAVELBINE [Suspect]
     Active Substance: VINORELBINE TARTRATE
     Indication: HER2 positive breast cancer
     Dosage: MOST RECENT DOSE PRIOR TO THE EVENT: 13/JUN/2019
     Route: 048
     Dates: start: 20180719, end: 20181130
  13. NAVELBINE [Suspect]
     Active Substance: VINORELBINE TARTRATE
     Dosage: MOST RECENT DOSE PRIOR TO THE EVENT: 13/JUN/2019
     Route: 048
     Dates: start: 20181210, end: 20190206
  14. NAVELBINE [Suspect]
     Active Substance: VINORELBINE TARTRATE
     Dosage: MOST RECENT DOSE PRIOR TO THE EVENT: 13/JUN/2019
     Route: 048
     Dates: start: 20190613, end: 20190705
  15. XELODA [Suspect]
     Active Substance: CAPECITABINE
     Indication: HER2 positive breast cancer
     Dosage: MOST RECENT DOSE PRIOR TO THE EVENT: 26/MAR/2020
     Route: 048
     Dates: start: 20200326, end: 20200430
  16. XELODA [Suspect]
     Active Substance: CAPECITABINE
     Dosage: MOST RECENT DOSE PRIOR TO THE EVENT: 26/MAR/2020
     Route: 048
     Dates: start: 20200512, end: 20200519
  17. AROMASIN [Suspect]
     Active Substance: EXEMESTANE
     Indication: HER2 positive breast cancer
     Route: 048
     Dates: start: 20180719, end: 20190507
  18. ESOMEPRAZOLE [Concomitant]
     Active Substance: ESOMEPRAZOLE
     Dates: start: 20190919, end: 20200207
  19. ESOMEPRAZOLE [Concomitant]
     Active Substance: ESOMEPRAZOLE
     Dates: start: 20200207
  20. DEXAMETHASONE [Concomitant]
     Active Substance: DEXAMETHASONE
  21. MAGNESIUM SUCCINATE [Concomitant]
     Dates: start: 20190819, end: 20200213
  22. DIMENHYDRINATE [Concomitant]
     Active Substance: DIMENHYDRINATE
     Indication: Vertigo
     Dates: start: 20191218
  23. HYDROMORPHONE HYDROCHLORIDE [Concomitant]
     Active Substance: HYDROMORPHONE HYDROCHLORIDE
     Dates: start: 20180727
  24. POLYETHYLENE GLYCOLS [Concomitant]
     Active Substance: POLYETHYLENE GLYCOLS
     Dates: start: 20180719
  25. XGEVA [Concomitant]
     Active Substance: DENOSUMAB
     Dates: start: 20181215
  26. DEXPANTHENOL [Concomitant]
     Active Substance: DEXPANTHENOL
  27. DEXAMETHASONE [Concomitant]
     Active Substance: DEXAMETHASONE
     Dates: start: 20191114
  28. ZOFRAN [Concomitant]
     Active Substance: ONDANSETRON HYDROCHLORIDE
     Indication: Nausea
     Dates: start: 20190919
  29. CALCIUM CARBONATE\CHOLECALCIFEROL [Concomitant]
     Active Substance: CALCIUM CARBONATE\CHOLECALCIFEROL
     Dates: start: 20181205
  30. EUTHYROX [Concomitant]
     Active Substance: LEVOTHYROXINE SODIUM
  31. KYTRIL [Concomitant]
     Active Substance: GRANISETRON HYDROCHLORIDE
     Dates: start: 20190829, end: 20200213
  32. NOVALGIN (AUSTRIA) [Concomitant]
     Dates: start: 20180727
  33. IMODIUM [Concomitant]
     Active Substance: LOPERAMIDE HYDROCHLORIDE
     Dates: start: 20180731

REACTIONS (2)
  - Abdominal pain [Unknown]
  - Platelet count decreased [Recovered/Resolved]

NARRATIVE: CASE EVENT DATE: 20200305
